FAERS Safety Report 21468611 (Version 1)
Quarter: 2022Q4

REPORT INFORMATION
  Report Type: Spontaneous
  Country: TT (occurrence: None)
  Receive Date: 20221017
  Receipt Date: 20221017
  Transmission Date: 20230113
  Serious: Yes (Hospitalization)
  Sender: FDA-Public Use
  Company Number: TT-MICRO LABS LIMITED-ML2022-05086

PATIENT
  Age: 32 Year
  Sex: Male

DRUGS (7)
  1. ATORVASTATIN [Suspect]
     Active Substance: ATORVASTATIN
     Indication: Angina unstable
  2. RAMIPRIL [Suspect]
     Active Substance: RAMIPRIL
     Indication: Angina unstable
  3. ASPIRIN [Suspect]
     Active Substance: ASPIRIN
     Indication: Angina unstable
  4. TICAGRELOR [Suspect]
     Active Substance: TICAGRELOR
     Indication: Angina unstable
  5. HEPARIN [Suspect]
     Active Substance: HEPARIN SODIUM
     Indication: Angina unstable
  6. CARVEDILOL [Suspect]
     Active Substance: CARVEDILOL
     Indication: Angina unstable
  7. AMLODIPINE [Suspect]
     Active Substance: AMLODIPINE BESYLATE
     Indication: Angina unstable

REACTIONS (1)
  - Drug ineffective [Unknown]
